FAERS Safety Report 6116997-8 (Version None)
Quarter: 2009Q1

REPORT INFORMATION
  Report Type: 
  Country: None (occurrence: None)
  Receive Date: 20090314
  Receipt Date: 20090102
  Transmission Date: 20090719
  Serious: No
  Sender: FDA-Public Use
  Company Number: US-ABBOTT-09P-163-0495650-00

PATIENT
  Sex: Male
  Weight: 81.72 kg

DRUGS (2)
  1. HUMIRA [Suspect]
     Indication: CROHN'S DISEASE
     Dosage: INITIAL DOSE NEXT DOSE DUE 07-JAN-2008
     Dates: start: 20081224, end: 20081224
  2. ALIMIA [Concomitant]
     Indication: CROHN'S DISEASE

REACTIONS (1)
  - ABNORMAL FAECES [None]
